FAERS Safety Report 17433401 (Version 1)
Quarter: 2020Q1

REPORT INFORMATION
  Report Type: Spontaneous
  Country: GB (occurrence: GB)
  Receive Date: 20200219
  Receipt Date: 20200219
  Transmission Date: 20200409
  Serious: Yes (Disabling)
  Sender: FDA-Public Use
  Company Number: GB-TEVA-2020-GB-1187864

PATIENT
  Age: 48 Year
  Sex: Female
  Weight: 58.06 kg

DRUGS (6)
  1. SALBUTAMOL [Concomitant]
     Active Substance: ALBUTEROL
  2. FOSTAIR [Concomitant]
     Active Substance: BECLOMETHASONE\FORMOTEROL
  3. IPRATROPIUM BROMIDE. [Concomitant]
     Active Substance: IPRATROPIUM BROMIDE
  4. PREDNISOLONE. [Concomitant]
     Active Substance: PREDNISOLONE
  5. LEVOFLOXACIN. [Suspect]
     Active Substance: LEVOFLOXACIN
     Indication: INFLUENZA LIKE ILLNESS
     Dosage: 1000 MILLIGRAM
     Route: 065
     Dates: start: 20200109, end: 20200114
  6. TIOTROPIUM [Concomitant]
     Active Substance: TIOTROPIUM

REACTIONS (5)
  - Myalgia [Not Recovered/Not Resolved]
  - Arthralgia [Unknown]
  - Tendon pain [Unknown]
  - Fatigue [Unknown]
  - Ligament pain [Unknown]
